FAERS Safety Report 7108360-8 (Version None)
Quarter: 2010Q4

REPORT INFORMATION
  Report Type: 
  Country: None (occurrence: None)
  Receive Date: 20101117
  Receipt Date: 20101109
  Transmission Date: 20110411
  Serious: Yes (Hospitalization, Congenital Anomaly)
  Sender: FDA-Public Use
  Company Number: A0743109A

PATIENT
  Sex: Female
  Weight: 3 kg

DRUGS (1)
  1. PAXIL [Suspect]
     Indication: PRODUCT USED FOR UNKNOWN INDICATION

REACTIONS (11)
  - ATRIAL SEPTAL DEFECT [None]
  - CARDIAC FAILURE CONGESTIVE [None]
  - CEREBROVASCULAR ACCIDENT [None]
  - COARCTATION OF THE AORTA [None]
  - DRUG EXPOSURE DURING PREGNANCY [None]
  - HYPOPLASTIC LEFT HEART SYNDROME [None]
  - MATERNAL DRUGS AFFECTING FOETUS [None]
  - MITRAL VALVE ATRESIA [None]
  - POST PROCEDURAL COMPLICATION [None]
  - SPEECH DISORDER DEVELOPMENTAL [None]
  - VENTRICULAR SEPTAL DEFECT [None]
